FAERS Safety Report 6173870-7 (Version None)
Quarter: 2009Q2

REPORT INFORMATION
  Report Type: 
  Country: None (occurrence: None)
  Receive Date: 20090429
  Receipt Date: 20090429
  Transmission Date: 20091009
  Serious: No
  Sender: FDA-Public Use
  Company Number: None

PATIENT
  Sex: Female
  Weight: 75.2971 kg

DRUGS (1)
  1. K-Y HIS + HERS [Suspect]

REACTIONS (2)
  - VAGINAL ERYTHEMA [None]
  - VAGINAL OEDEMA [None]
